FAERS Safety Report 5729722-7 (Version None)
Quarter: 2008Q2

REPORT INFORMATION
  Report Type: 
  Country: None (occurrence: None)
  Receive Date: 20080506
  Receipt Date: 20080501
  Transmission Date: 20081010
  Serious: Yes (Hospitalization)
  Sender: FDA-Public Use
  Company Number: US-BOEHRINGER INGELHEIM GMBH, GERMANY-2008-BP-05955BP

PATIENT
  Sex: Female

DRUGS (7)
  1. SPIRIVA [Suspect]
     Indication: CHRONIC OBSTRUCTIVE PULMONARY DISEASE
     Route: 055
     Dates: start: 20060101
  2. ADVAIR HFA [Concomitant]
  3. BP MEDS [Concomitant]
  4. PREVACID [Concomitant]
  5. DIOVAN [Concomitant]
  6. LIBRAX [Concomitant]
  7. LIPITOR [Concomitant]

REACTIONS (1)
  - THROAT TIGHTNESS [None]
